FAERS Safety Report 4920206-2 (Version None)
Quarter: 2006Q1

REPORT INFORMATION
  Report Type: 
  Country: None (occurrence: None)
  Receive Date: 20060223
  Receipt Date: 20060216
  Transmission Date: 20060701
  Serious: Yes (Hospitalization)
  Sender: FDA-Public Use
  Company Number: 2006CG00340

PATIENT
  Age: 83 Year
  Sex: Female

DRUGS (6)
  1. ARIMIDEX [Suspect]
     Indication: BREAST CANCER
     Route: 048
  2. ALDACTAZINE [Suspect]
     Route: 048
  3. VASTAREL [Suspect]
     Route: 048
  4. KARDEGIC [Suspect]
     Route: 048
     Dates: end: 20051205
  5. COUMADIN [Suspect]
     Route: 048
     Dates: end: 20051205
  6. ESBERIVEN FORT [Suspect]
     Route: 048

REACTIONS (2)
  - ANAEMIA [None]
  - OESOPHAGITIS [None]
